FAERS Safety Report 14742927 (Version 3)
Quarter: 2018Q3

REPORT INFORMATION
  Report Type: Report from Study
  Country: US (occurrence: US)
  Receive Date: 20180410
  Receipt Date: 20180911
  Transmission Date: 20181010
  Serious: Yes (Hospitalization)
  Sender: FDA-Public Use
  Company Number: US-ACTELION-A-NJ2016-141269

PATIENT
  Age: 69 Year
  Sex: Female
  Weight: 47.62 kg

DRUGS (28)
  1. CHOLECALCIFEROL [Concomitant]
     Active Substance: CHOLECALCIFEROL
  2. FERROUS SULFATE. [Concomitant]
     Active Substance: FERROUS SULFATE
  3. TYVASO [Suspect]
     Active Substance: TREPROSTINIL
     Indication: PRODUCT USED FOR UNKNOWN INDICATION
     Dosage: 15 BREATHS/MIN, QID
     Route: 065
  4. ASPIRIN. [Concomitant]
     Active Substance: ASPIRIN
  5. LOPERAMIDE [Concomitant]
     Active Substance: LOPERAMIDE
  6. MULTIVITAMIN [Concomitant]
     Active Substance: VITAMINS
  7. ASCORBIC ACID. [Concomitant]
     Active Substance: ASCORBIC ACID
  8. GLUCOSAM [Concomitant]
  9. HYDROXYCHLOROQUINE [Concomitant]
     Active Substance: HYDROXYCHLOROQUINE
  10. LORATADINE. [Concomitant]
     Active Substance: LORATADINE
  11. SILDENAFIL. [Concomitant]
     Active Substance: SILDENAFIL
     Dosage: 40 MG, TID
  12. OXYGEN. [Concomitant]
     Active Substance: OXYGEN
     Dosage: 5.5 L, UNK
  13. ATORVASTATIN [Concomitant]
     Active Substance: ATORVASTATIN
  14. FUROSEMIDE. [Concomitant]
     Active Substance: FUROSEMIDE
  15. OPSUMIT [Suspect]
     Active Substance: MACITENTAN
     Dosage: 10 MG, QD
     Route: 048
     Dates: start: 20160812
  16. PREDNISONE. [Suspect]
     Active Substance: PREDNISONE
     Indication: PRODUCT USED FOR UNKNOWN INDICATION
     Route: 065
  17. METOPROLOL. [Concomitant]
     Active Substance: METOPROLOL
  18. ALENDRONATE [Concomitant]
     Active Substance: ALENDRONATE SODIUM
  19. FLUTICASONE PROPIONATE W/SALMETEROL [Concomitant]
     Active Substance: FLUTICASONE PROPIONATE\SALMETEROL XINAFOATE
  20. SILDENAFIL. [Concomitant]
     Active Substance: SILDENAFIL
     Indication: PULMONARY ARTERIAL HYPERTENSION
     Dosage: 20 MG, TID
  21. OXYGEN. [Concomitant]
     Active Substance: OXYGEN
     Dosage: 4 L, UNK
  22. TIOTROPIUM [Concomitant]
     Active Substance: TIOTROPIUM
  23. OPSUMIT [Suspect]
     Active Substance: MACITENTAN
     Indication: PULMONARY ARTERIAL HYPERTENSION
     Dosage: 10 MG, QD
     Route: 048
     Dates: start: 20160812
  24. REMODULIN [Concomitant]
     Active Substance: TREPROSTINIL
  25. TYVASO [Suspect]
     Active Substance: TREPROSTINIL
     Dosage: 14 PUFF, Q4HRS
     Route: 065
  26. ACETAMINOPHEN. [Concomitant]
     Active Substance: ACETAMINOPHEN
  27. ALBUTEROL. [Concomitant]
     Active Substance: ALBUTEROL
  28. CALCIUM [Concomitant]
     Active Substance: CALCIUM

REACTIONS (45)
  - Fluid overload [Recovered/Resolved]
  - Pulmonary arterial hypertension [Unknown]
  - Pulmonary arterial pressure abnormal [Unknown]
  - Pulmonary arterial wedge pressure increased [Unknown]
  - Nasal dryness [Unknown]
  - Oxygen saturation decreased [Unknown]
  - N-terminal prohormone brain natriuretic peptide increased [Unknown]
  - Aspartate aminotransferase increased [Unknown]
  - Condition aggravated [Unknown]
  - Catheter site related reaction [Unknown]
  - Arthritis [Not Recovered/Not Resolved]
  - Rash [Unknown]
  - Delirium [Unknown]
  - Hypoxia [Recovered/Resolved]
  - Fluid retention [Unknown]
  - Weight increased [Recovered/Resolved]
  - Ventilation perfusion mismatch [Unknown]
  - Hypotension [Unknown]
  - Dyspnoea [Recovered/Resolved]
  - Peripheral swelling [Unknown]
  - Haematocrit decreased [Unknown]
  - Nervousness [Unknown]
  - Throat irritation [Unknown]
  - Malaise [Unknown]
  - Oxygen consumption increased [Recovered/Resolved]
  - Red blood cell count decreased [Unknown]
  - Haemoglobin decreased [Unknown]
  - Catheter site warmth [Unknown]
  - Epistaxis [Recovered/Resolved]
  - Head discomfort [Unknown]
  - Unevaluable event [Unknown]
  - Oedema peripheral [Recovered/Resolved]
  - Right atrial pressure increased [Unknown]
  - Feeling abnormal [Unknown]
  - Visual impairment [Unknown]
  - Cough [Unknown]
  - Acute respiratory failure [Recovered/Resolved]
  - Catheter site swelling [Unknown]
  - Diarrhoea [Unknown]
  - Heart rate increased [Unknown]
  - Productive cough [Unknown]
  - Nasal congestion [Unknown]
  - Catheter site erythema [Unknown]
  - Disturbance in attention [Unknown]
  - Pain [Not Recovered/Not Resolved]

NARRATIVE: CASE EVENT DATE: 2018
